FAERS Safety Report 12177049 (Version 3)
Quarter: 2016Q2

REPORT INFORMATION
  Report Type: Spontaneous
  Country: ES (occurrence: ES)
  Receive Date: 20160314
  Receipt Date: 20160428
  Transmission Date: 20160815
  Serious: Yes (Other)
  Sender: FDA-Public Use
  Company Number: ES-BAYER-2016-048732

PATIENT
  Age: 35 Year
  Sex: Female
  Weight: 67 kg

DRUGS (1)
  1. MIRENA [Suspect]
     Active Substance: LEVONORGESTREL
     Dosage: 20 MCG/24HR, CONT
     Route: 015
     Dates: start: 20111104, end: 20151231

REACTIONS (9)
  - Pregnancy with contraceptive device [None]
  - Bronchitis [None]
  - Asthenia [None]
  - Drug ineffective [None]
  - Oligomenorrhoea [None]
  - Tongue discolouration [None]
  - Vaginal haemorrhage [Recovered/Resolved]
  - Benign hydatidiform mole [None]
  - Amenorrhoea [Recovered/Resolved]

NARRATIVE: CASE EVENT DATE: 20111104
